FAERS Safety Report 8722614 (Version 2)
Quarter: 2012Q4

REPORT INFORMATION
  Report Type: Report from Study
  Country: JP (occurrence: JP)
  Receive Date: 20120814
  Receipt Date: 20121121
  Transmission Date: 20130627
  Serious: Yes (Other)
  Sender: FDA-Public Use
  Company Number: JP-009507513-1208JPN005594

PATIENT
  Age: 52 Year
  Sex: Male
  Weight: 61 kg

DRUGS (15)
  1. PEGINTRON [Suspect]
     Indication: CHRONIC HEPATITIS C
     Dosage: 1.5 Microgram per kilogram, qw
     Route: 058
     Dates: start: 20120117, end: 20120220
  2. PEGINTRON [Suspect]
     Dosage: 1.3 Microgram per kilogram, qw
     Route: 058
     Dates: start: 20120227, end: 20120227
  3. PEGINTRON [Suspect]
     Dosage: 0.9 Microgram per kilogram, qw
     Route: 058
     Dates: start: 20120305, end: 20120305
  4. PEGINTRON [Suspect]
     Dosage: 1.3 Microgram per kilogram, qw
     Route: 058
     Dates: start: 20120312, end: 20120402
  5. PEGINTRON [Suspect]
     Dosage: 0.9 Microgram per kilogram, qw
     Route: 058
     Dates: start: 20120409, end: 20120528
  6. PEGINTRON [Suspect]
     Dosage: 1.2 Microgram per kilogram, qw
     Route: 058
     Dates: start: 20120604
  7. REBETOL [Suspect]
     Indication: CHRONIC HEPATITIS C
     Dosage: 800 mg, qd
     Route: 048
     Dates: start: 20120117, end: 20120219
  8. REBETOL [Suspect]
     Dosage: 600 mg, qd
     Route: 048
     Dates: start: 20120220, end: 20120304
  9. REBETOL [Suspect]
     Dosage: 200 mg, qd
     Route: 048
     Dates: start: 20120305, end: 20120408
  10. REBETOL [Suspect]
     Dosage: 400 mg, qd
     Route: 048
     Dates: start: 20120409, end: 20120422
  11. REBETOL [Suspect]
     Dosage: 500 mg, qd
     Route: 048
     Dates: start: 20120423, end: 20120624
  12. REBETOL [Suspect]
     Dosage: 200 mg, tid
     Route: 048
     Dates: start: 20120625, end: 20120708
  13. REBETOL [Suspect]
     Dosage: 700 mg, qd
     Route: 048
     Dates: start: 20120709
  14. TELAVIC [Suspect]
     Indication: CHRONIC HEPATITIS C
     Dosage: 2250 mg, qd
     Route: 048
     Dates: start: 20120117, end: 20120409
  15. GASPORT D [Concomitant]
     Indication: PROPHYLAXIS
     Dosage: 20 mg, qd
     Route: 048
     Dates: start: 20120117

REACTIONS (11)
  - Platelet count decreased [Recovering/Resolving]
  - Haemoglobin decreased [Not Recovered/Not Resolved]
  - Pyrexia [None]
  - Malaise [None]
  - Headache [None]
  - Decreased appetite [None]
  - Injection site erythema [None]
  - White blood cell count decreased [None]
  - Hyperuricaemia [None]
  - Rash pruritic [None]
  - Rash papular [None]
